FAERS Safety Report 6387547-6 (Version None)
Quarter: 2009Q4

REPORT INFORMATION
  Report Type: 
  Country: None (occurrence: None)
  Receive Date: 20091005
  Receipt Date: 20090923
  Transmission Date: 20100525
  Serious: Yes (Hospitalization)
  Sender: FDA-Public Use
  Company Number: IT-RANBAXY-2009RR-28245

PATIENT
  Sex: Male

DRUGS (4)
  1. SERTRALINE HCL [Suspect]
     Indication: DEPRESSION
     Dosage: 150 MG, QD
     Route: 048
     Dates: start: 20090728, end: 20090827
  2. FLURAZEPAM [Concomitant]
     Dosage: 30 MG, QD
  3. ZOFEPRIL [Concomitant]
     Dosage: 30 MG, QD
  4. LEUPROLIDE ACETATE [Concomitant]
     Dosage: UNK

REACTIONS (3)
  - BALANCE DISORDER [None]
  - MYALGIA [None]
  - RHABDOMYOLYSIS [None]
